FAERS Safety Report 6380537-9 (Version None)
Quarter: 2009Q3

REPORT INFORMATION
  Report Type: 
  Country: None (occurrence: None)
  Receive Date: 20090923
  Receipt Date: 20090908
  Transmission Date: 20100115
  Serious: Yes (Hospitalization)
  Sender: FDA-Public Use
  Company Number: 001717

PATIENT

DRUGS (1)
  1. NEUPRO [Suspect]
     Dosage: TRANSDERMAL
     Route: 062

REACTIONS (1)
  - INCORRECT PRODUCT STORAGE [None]
